FAERS Safety Report 16425963 (Version 1)
Quarter: 2019Q2

REPORT INFORMATION
  Report Type: Report from Study
  Country: BR (occurrence: BR)
  Receive Date: 20190613
  Receipt Date: 20190613
  Transmission Date: 20190711
  Serious: Yes (Hospitalization)
  Sender: FDA-Public Use
  Company Number: BR-UCBSA-2019023115

PATIENT
  Age: 54 Year
  Sex: Male
  Weight: 65 kg

DRUGS (7)
  1. CERTOLIZUMAB PEGOL [Suspect]
     Active Substance: CERTOLIZUMAB PEGOL
     Indication: ANKYLOSING SPONDYLITIS
     Dosage: 400 MILLIGRAM, MONTHLY (QM)
     Route: 058
     Dates: start: 201812, end: 201904
  2. CETOPROFENO [Concomitant]
     Indication: ANKYLOSING SPONDYLITIS
     Dosage: 200 MILLIGRAM, ONCE DAILY (QD)
     Route: 048
  3. METHOTREXATO [Concomitant]
     Active Substance: METHOTREXATE
     Indication: ANKYLOSING SPONDYLITIS
     Dosage: 12.5 MILLIGRAM, WEEKLY (QW)
     Route: 048
  4. CORTISONE [Concomitant]
     Active Substance: CORTISONE\HYDROCORTISONE
     Indication: ANKYLOSING SPONDYLITIS
     Dosage: 80 MILLIGRAM, ONCE DAILY (QD)
  5. LOSARTAN. [Concomitant]
     Active Substance: LOSARTAN
     Indication: HYPERTENSION
     Dosage: UNK
  6. AZATIOPRINA [Concomitant]
     Active Substance: AZATHIOPRINE
     Indication: ANKYLOSING SPONDYLITIS
     Dosage: 10 MILLIGRAM, 2X/DAY (BID)
     Route: 048
     Dates: start: 2019
  7. OMEPRAZOL [Concomitant]
     Active Substance: OMEPRAZOLE
     Indication: ABDOMINAL PAIN UPPER
     Dosage: 40 MILLIGRAM, ONCE DAILY (QD)
     Route: 048

REACTIONS (4)
  - Pain [Unknown]
  - Condition aggravated [Recovering/Resolving]
  - Malaise [Unknown]
  - Pyrexia [Recovering/Resolving]

NARRATIVE: CASE EVENT DATE: 20190410
